FAERS Safety Report 5026267-7 (Version None)
Quarter: 2006Q2

REPORT INFORMATION
  Report Type: 
  Country: None (occurrence: None)
  Receive Date: 20060608
  Receipt Date: 20060531
  Transmission Date: 20061013
  Serious: Yes (Death, Other)
  Sender: FDA-Public Use
  Company Number: 2006063526

PATIENT
  Age: 82 Year
  Sex: Female
  Weight: 73.6 kg

DRUGS (5)
  1. INSPRA [Suspect]
     Indication: CARDIAC FAILURE
     Dosage: 25 MG (25 MG, DAILY), ORAL
     Route: 048
     Dates: start: 20060321, end: 20060425
  2. RAMIPRIL [Concomitant]
  3. BUMETANIDE [Concomitant]
  4. PERINDOPRIL (PERINDOPRIL) [Concomitant]
  5. BISOPROLOL FUMARATE [Concomitant]

REACTIONS (4)
  - BLOOD POTASSIUM INCREASED [None]
  - HYPERKALAEMIA [None]
  - LOWER RESPIRATORY TRACT INFECTION [None]
  - RENAL FAILURE ACUTE [None]
